FAERS Safety Report 10194951 (Version 1)
Quarter: 2014Q2

REPORT INFORMATION
  Report Type: Spontaneous
  Country: US (occurrence: US)
  Receive Date: 20140526
  Receipt Date: 20140526
  Transmission Date: 20141212
  Serious: No
  Sender: FDA-Public Use
  Company Number: US-PFIZER INC-2014143095

PATIENT
  Age: 33 Year
  Sex: Female
  Weight: 67.6 kg

DRUGS (4)
  1. GABAPENTIN [Suspect]
     Indication: FIBROMYALGIA
     Dosage: UNK
  2. LEXAPRO [Concomitant]
     Dosage: UNK
  3. LAMICTAL [Concomitant]
     Dosage: UNK
  4. XANAX [Concomitant]
     Dosage: UNK

REACTIONS (1)
  - Drug ineffective [Unknown]
